FAERS Safety Report 13763704 (Version 2)
Quarter: 2017Q3

REPORT INFORMATION
  Report Type: Spontaneous
  Country: DE (occurrence: DE)
  Receive Date: 20170718
  Receipt Date: 20170913
  Transmission Date: 20171127
  Serious: Yes (Other)
  Sender: FDA-Public Use
  Company Number: PHHY2017DE067342

PATIENT
  Age: 58 Year
  Sex: Male
  Weight: 98 kg

DRUGS (5)
  1. COSENTYX [Suspect]
     Active Substance: SECUKINUMAB
     Indication: PSORIASIS
     Dosage: 300 MG, QMO (EVERY 4 WEEKS)
     Route: 058
     Dates: start: 20161212, end: 20170110
  2. COSENTYX [Suspect]
     Active Substance: SECUKINUMAB
     Dosage: 300 MG, QW
     Route: 058
  3. COSENTYX [Suspect]
     Active Substance: SECUKINUMAB
     Dosage: 300 MG, QMO
     Route: 058
     Dates: end: 201704
  4. TAMSULOSIN [Concomitant]
     Active Substance: TAMSULOSIN
     Indication: BENIGN PROSTATIC HYPERPLASIA
     Dosage: UNK UNK, QD (ABOUT ONE YEAR AGO)
     Route: 065
  5. COSENTYX [Suspect]
     Active Substance: SECUKINUMAB
     Dosage: 300 MG, QW
     Route: 058

REACTIONS (27)
  - Blood lactate dehydrogenase increased [Unknown]
  - Blood triglycerides increased [Unknown]
  - Glomerular filtration rate decreased [Unknown]
  - Mean cell volume increased [Unknown]
  - Blood creatinine increased [Not Recovered/Not Resolved]
  - Arthralgia [Unknown]
  - Alpha globulin decreased [Unknown]
  - Red cell distribution width increased [Unknown]
  - Blood immunoglobulin G increased [Unknown]
  - Respiratory tract infection [Unknown]
  - Cough [Recovered/Resolved]
  - Bronchial hyperreactivity [Recovering/Resolving]
  - Psoriasis [Unknown]
  - Hyperlipidaemia [Unknown]
  - Prostatic specific antigen increased [Unknown]
  - Lung infection [Unknown]
  - Serum ferritin increased [Unknown]
  - Glycosylated haemoglobin increased [Unknown]
  - Inappropriate schedule of drug administration [Unknown]
  - Bacterial infection [Unknown]
  - Gamma-glutamyltransferase increased [Unknown]
  - Blood immunoglobulin A increased [Unknown]
  - Alanine aminotransferase increased [Unknown]
  - Basophil count increased [Not Recovered/Not Resolved]
  - Blood glucose increased [Unknown]
  - Haemoglobin decreased [Unknown]
  - Throat irritation [Recovered/Resolved]

NARRATIVE: CASE EVENT DATE: 20170315
